FAERS Safety Report 8348202 (Version 3)
Quarter: 2013Q2

REPORT INFORMATION
  Report Type: Spontaneous
  Country: US (occurrence: None)
  Receive Date: 20111220
  Receipt Date: 20121227
  Transmission Date: 20140414
  Serious: Yes (Hospitalization)
  Sender: FDA-Public Use
  Company Number: PHEH2011US06047

PATIENT
  Age: 42 Year
  Sex: Female

DRUGS (1)
  1. MYFORTIC [Suspect]
     Indication: RENAL AND PANCREAS TRANSPLANT
     Dosage: 360 MG, QID, ORAL?SINCE 4 YEARS
     Route: 048

REACTIONS (4)
  - RENAL AND PANCREAS TRANSPLANT REJECTION [None]
  - BLOOD IRON DECREASED [None]
  - WHITE BLOOD CELL COUNT DECREASED [None]
  - Diarrhoea [None]
